FAERS Safety Report 7444680-5 (Version None)
Quarter: 2011Q2

REPORT INFORMATION
  Report Type: 
  Country: None (occurrence: None)
  Receive Date: 20110429
  Receipt Date: 20110420
  Transmission Date: 20111010
  Serious: Yes (Hospitalization, Other)
  Sender: FDA-Public Use
  Company Number: US-NOVOPROD-325397

PATIENT
  Sex: Male
  Weight: 92.971 kg

DRUGS (6)
  1. MIRALAX [Concomitant]
     Dosage: UNK
  2. VICTOZA [Suspect]
     Dosage: 1.2 MG, QD
  3. STOOL SOFTENER [Concomitant]
     Indication: CONSTIPATION
  4. VICTOZA [Suspect]
     Indication: TYPE 2 DIABETES MELLITUS
     Dosage: 0.6 MG, QD
     Route: 058
     Dates: start: 20100415
  5. VICTOZA [Suspect]
     Dosage: 1.8 MG, QD
     Dates: end: 20110330
  6. MORPHINE [Concomitant]
     Indication: BACK PAIN
     Dosage: UNK
     Dates: start: 20100101

REACTIONS (2)
  - HYPERTHYROIDISM [None]
  - ATRIAL FIBRILLATION [None]
